FAERS Safety Report 9277776 (Version 3)
Quarter: 2013Q2

REPORT INFORMATION
  Report Type: Spontaneous
  Country: DK (occurrence: DK)
  Receive Date: 20130508
  Receipt Date: 20130521
  Transmission Date: 20140414
  Serious: Yes (Other)
  Sender: FDA-Public Use
  Company Number: DK-JNJFOC-20130415535

PATIENT
  Age: 20 Year
  Sex: Male

DRUGS (3)
  1. REMICADE [Suspect]
     Indication: COLITIS ULCERATIVE
     Route: 042
     Dates: start: 20120629
  2. REMICADE [Suspect]
     Indication: COLITIS ULCERATIVE
     Route: 042
     Dates: start: 20120615
  3. IMUREL [Concomitant]
     Route: 065
     Dates: start: 20120626

REACTIONS (2)
  - Colectomy [Unknown]
  - Optic neuritis [Not Recovered/Not Resolved]
